FAERS Safety Report 23361640 (Version 3)
Quarter: 2024Q1

REPORT INFORMATION
  Report Type: Spontaneous
  Country: US (occurrence: US)
  Receive Date: 20240103
  Receipt Date: 20240307
  Transmission Date: 20240409
  Serious: Yes (Other)
  Sender: FDA-Public Use
  Company Number: US-ALIMERA SCIENCES INC.-US-A16013-23-001045

PATIENT
  Age: 93 Year
  Sex: Male

DRUGS (1)
  1. YUTIQ [Suspect]
     Active Substance: FLUOCINOLONE ACETONIDE
     Indication: Product used for unknown indication
     Dosage: 0.18 MILLIGRAM, SINGLE, -UNKNOWN EYE
     Route: 031
     Dates: start: 202302

REACTIONS (1)
  - Blindness [Unknown]

NARRATIVE: CASE EVENT DATE: 20230704
